FAERS Safety Report 25359104 (Version 4)
Quarter: 2025Q3

REPORT INFORMATION
  Report Type: Report from Study
  Country: US (occurrence: US)
  Receive Date: 20250526
  Receipt Date: 20250724
  Transmission Date: 20251020
  Serious: Yes (Other)
  Sender: MALLINCKRODT
  Company Number: US-MALLINCKRODT-MNK202502206

PATIENT
  Sex: Male

DRUGS (4)
  1. CORTICOTROPIN [Suspect]
     Active Substance: CORTICOTROPIN
     Indication: Nephrotic syndrome
     Dates: start: 20231116
  2. CORTICOTROPIN [Suspect]
     Active Substance: CORTICOTROPIN
     Indication: Nephrotic syndrome
     Dosage: 80 UNITS
     Dates: start: 20250227, end: 2025
  3. COVID-19 VACCINE NOS [Suspect]
     Active Substance: COVID-19 VACCINE
     Indication: COVID-19 immunisation
  4. INFLUENZA VIRUS VACCINE [Suspect]
     Active Substance: INFLUENZA VIRUS VACCINE
     Indication: Influenza immunisation

REACTIONS (10)
  - Diabetes mellitus [Unknown]
  - Immune system disorder [Unknown]
  - Nephrotic syndrome [Unknown]
  - Anxiety [Unknown]
  - Adverse drug reaction [Unknown]
  - Hypersomnia [Unknown]
  - Anger [Unknown]
  - Insomnia [Unknown]
  - Decreased appetite [Unknown]
  - Increased appetite [Unknown]
